FAERS Safety Report 7122325-1 (Version None)
Quarter: 2010Q4

REPORT INFORMATION
  Report Type: 
  Country: None (occurrence: None)
  Receive Date: 20101124
  Receipt Date: 20101115
  Transmission Date: 20110411
  Serious: Yes (Other)
  Sender: FDA-Public Use
  Company Number: US-PFIZER INC-2010132010

PATIENT
  Sex: Female
  Weight: 63 kg

DRUGS (14)
  1. ZOLOFT [Suspect]
     Indication: DEPRESSION
     Dosage: UNK
  2. EFFEXOR XR [Suspect]
     Indication: SUICIDAL IDEATION
     Dosage: UNK
  3. EFFEXOR XR [Suspect]
     Indication: DEPRESSION
  4. PAXIL [Suspect]
     Indication: SUICIDAL IDEATION
     Dosage: UNK
  5. PAXIL [Suspect]
     Indication: DEPRESSION
  6. VITAMINS [Concomitant]
     Dosage: UNK
  7. ADDERALL 10 [Concomitant]
     Indication: ATTENTION DEFICIT/HYPERACTIVITY DISORDER
     Dosage: 15 MG, 2X/DAY
     Dates: start: 20100415
  8. ORTHO-NOVUM [Concomitant]
     Indication: CONTRACEPTION
     Dosage: UNK
     Dates: start: 20091201
  9. WELLBUTRIN XL [Concomitant]
     Dosage: 150 MG, 1X/DAY
  10. TRAZODONE [Concomitant]
     Dosage: 50 MG, 1X/DAY
  11. ZANTAC [Concomitant]
     Dosage: 150 MG, 2X/DAY
  12. ADDERALL XR 10 [Concomitant]
     Dosage: UNK
  13. LORCET-HD [Concomitant]
     Dosage: UNK
  14. FLEXERIL [Concomitant]
     Dosage: UNK

REACTIONS (10)
  - ANXIETY [None]
  - APATHY [None]
  - ASTHENIA [None]
  - DEPRESSION [None]
  - DRUG ABUSE [None]
  - DRUG EFFECT DECREASED [None]
  - PHOTOPHOBIA [None]
  - SINUS HEADACHE [None]
  - SUICIDAL IDEATION [None]
  - VISUAL IMPAIRMENT [None]
